FAERS Safety Report 21556098 (Version 3)
Quarter: 2023Q1

REPORT INFORMATION
  Report Type: Spontaneous
  Country: GB (occurrence: GB)
  Receive Date: 20221104
  Receipt Date: 20230102
  Transmission Date: 20230417
  Serious: Yes (Other)
  Sender: FDA-Public Use
  Company Number: GB-TAKEDA-2022TUS081140

PATIENT
  Sex: Female

DRUGS (2)
  1. EXKIVITY [Suspect]
     Active Substance: MOBOCERTINIB
     Indication: Non-small cell lung cancer
     Dosage: 160 MILLIGRAM, QD
     Route: 065
     Dates: start: 202205
  2. EXKIVITY [Suspect]
     Active Substance: MOBOCERTINIB
     Dosage: 120 MILLIGRAM, QD
     Route: 065

REACTIONS (9)
  - Non-small cell lung cancer [Unknown]
  - Oral pain [Unknown]
  - Dry mouth [Unknown]
  - Paraesthesia [Unknown]
  - Dysgeusia [Unknown]
  - Muscle spasms [Unknown]
  - Abdominal discomfort [Unknown]
  - Rash [Unknown]
  - Dry skin [Unknown]
